FAERS Safety Report 20581057 (Version 3)
Quarter: 2022Q3

REPORT INFORMATION
  Report Type: Report from Study
  Country: CA (occurrence: CA)
  Receive Date: 20220311
  Receipt Date: 20220803
  Transmission Date: 20221026
  Serious: Yes (Death, Congenital Anomaly, Other)
  Sender: FDA-Public Use
  Company Number: CA-AUROBINDO-AUR-APL-2022-007818

PATIENT
  Age: 5 Day
  Sex: Female
  Weight: 1 kg

DRUGS (6)
  1. LOSARTAN [Suspect]
     Active Substance: LOSARTAN
     Indication: Peripartum cardiomyopathy
     Dosage: UNK
     Route: 064
  2. LOSARTAN [Suspect]
     Active Substance: LOSARTAN
     Indication: Hypertension
  3. PERINDOPRIL [Suspect]
     Active Substance: PERINDOPRIL
     Indication: Peripartum cardiomyopathy
     Dosage: UNK
     Route: 064
  4. PERINDOPRIL [Suspect]
     Active Substance: PERINDOPRIL
     Indication: Hypertension
  5. LASIX [Concomitant]
     Active Substance: FUROSEMIDE
     Indication: Product used for unknown indication
     Dosage: UNK
     Route: 064
  6. SPIRONOLACTONE [Concomitant]
     Active Substance: SPIRONOLACTONE
     Indication: Product used for unknown indication
     Dosage: UNK
     Route: 064

REACTIONS (15)
  - Anuria [Fatal]
  - Angiotensin converting enzyme inhibitor foetopathy [Fatal]
  - Foetal malformation [Fatal]
  - Gingival disorder [Fatal]
  - Hypocalvaria [Fatal]
  - Hypotension [Fatal]
  - Limb deformity [Fatal]
  - Polyuria [Fatal]
  - Potter^s syndrome [Fatal]
  - Renal aplasia [Fatal]
  - Respiratory failure [Fatal]
  - Foetal exposure during pregnancy [Fatal]
  - Apgar score low [Fatal]
  - Low birth weight baby [Fatal]
  - Premature baby [Fatal]
